FAERS Safety Report 12110708 (Version 5)
Quarter: 2016Q2

REPORT INFORMATION
  Report Type: Spontaneous
  Country: JP (occurrence: JP)
  Receive Date: 20160224
  Receipt Date: 20160427
  Transmission Date: 20160815
  Serious: Yes (Death)
  Sender: FDA-Public Use
  Company Number: JP-SA-2016SA034523

PATIENT
  Age: 78 Year
  Sex: Male

DRUGS (7)
  1. NIFEDIPINE. [Concomitant]
     Active Substance: NIFEDIPINE
     Dates: start: 20151028
  2. VESICARE [Concomitant]
     Active Substance: SOLIFENACIN SUCCINATE
     Indication: POLLAKIURIA
     Route: 048
     Dates: start: 20150513, end: 20151101
  3. CIRCANETTEN [Concomitant]
     Active Substance: KERATIN\SENNA LEAF
     Dates: start: 20151028
  4. PREDNISOLONE. [Concomitant]
     Active Substance: PREDNISOLONE
     Route: 048
     Dates: start: 20151021, end: 20151101
  5. LEUPLIN [Concomitant]
     Active Substance: LEUPROLIDE ACETATE
     Dates: start: 20120123
  6. TAXOTERE [Suspect]
     Active Substance: DOCETAXEL
     Indication: HORMONE-REFRACTORY PROSTATE CANCER
     Dosage: DOSE: 80MG/BODY
     Route: 042
     Dates: start: 20151028, end: 20151028
  7. LANSOPRAZOLE. [Concomitant]
     Active Substance: LANSOPRAZOLE
     Dates: start: 20151028

REACTIONS (3)
  - Abdominal pain [Fatal]
  - Constipation [Fatal]
  - Colitis ischaemic [Fatal]

NARRATIVE: CASE EVENT DATE: 20151101
